FAERS Safety Report 13284452 (Version 1)
Quarter: 2017Q1

REPORT INFORMATION
  Report Type: Spontaneous
  Country: US (occurrence: US)
  Receive Date: 20170301
  Receipt Date: 20170301
  Transmission Date: 20170428
  Serious: No
  Sender: FDA-Public Use
  Company Number: US-009507513-1702USA010926

PATIENT
  Age: 30 Year
  Sex: Female
  Weight: 97.05 kg

DRUGS (1)
  1. NEXPLANON [Suspect]
     Active Substance: ETONOGESTREL
     Indication: CONTRACEPTION
     Dosage: UNK
     Route: 059
     Dates: start: 20170105, end: 20170216

REACTIONS (1)
  - Implant site infection [Recovering/Resolving]

NARRATIVE: CASE EVENT DATE: 20170111
